FAERS Safety Report 23091664 (Version 2)
Quarter: 2023Q4

REPORT INFORMATION
  Report Type: Report from Study
  Country: CA (occurrence: CA)
  Receive Date: 20231020
  Receipt Date: 20231101
  Transmission Date: 20240109
  Serious: Yes (Hospitalization, Other)
  Sender: FDA-Public Use
  Company Number: CA-HLS-202302396

PATIENT
  Age: 70 Year
  Sex: Female

DRUGS (2)
  1. CLOZARIL [Suspect]
     Active Substance: CLOZAPINE
     Indication: Product used for unknown indication
     Route: 048
     Dates: start: 19921214, end: 20231011
  2. CLOZARIL [Suspect]
     Active Substance: CLOZAPINE
     Indication: Product used for unknown indication
     Dosage: RESTARTED O OCTOBER 20TH, 2023
     Route: 048

REACTIONS (2)
  - Therapy interrupted [Recovered/Resolved]
  - Urosepsis [Unknown]

NARRATIVE: CASE EVENT DATE: 20231011
